FAERS Safety Report 8072149-6 (Version None)
Quarter: 2012Q1

REPORT INFORMATION
  Report Type: 
  Country: None (occurrence: None)
  Receive Date: 20120126
  Receipt Date: 20120118
  Transmission Date: 20120608
  Serious: Yes (Death, Other)
  Sender: FDA-Public Use
  Company Number: ZA-ELI_LILLY_AND_COMPANY-ZA201109004500

PATIENT
  Age: 64 Year
  Sex: Male

DRUGS (2)
  1. CARBILEV [Concomitant]
  2. CYMBALTA [Suspect]
     Indication: DEPRESSION
     Dosage: 60 MG, UNKNOWN
     Route: 048

REACTIONS (2)
  - DRUG INTERACTION [None]
  - DEATH [None]
